FAERS Safety Report 10447030 (Version 1)
Quarter: 2014Q3

REPORT INFORMATION
  Report Type: Spontaneous
  Country: US (occurrence: US)
  Receive Date: 20140911
  Receipt Date: 20140911
  Transmission Date: 20150326
  Serious: No
  Sender: FDA-Public Use
  Company Number: US-PFIZER INC-2014249004

PATIENT
  Age: 59 Year
  Sex: Female
  Weight: 81.63 kg

DRUGS (5)
  1. XANAX [Concomitant]
     Active Substance: ALPRAZOLAM
     Indication: INSOMNIA
     Dosage: 0.5 MG, AS NEEDED
     Dates: start: 201407
  2. XANAX [Concomitant]
     Active Substance: ALPRAZOLAM
     Indication: PROCEDURAL PAIN
  3. XANAX [Concomitant]
     Active Substance: ALPRAZOLAM
     Indication: KNEE ARTHROPLASTY
  4. LYRICA [Suspect]
     Active Substance: PREGABALIN
     Indication: KNEE ARTHROPLASTY
  5. LYRICA [Suspect]
     Active Substance: PREGABALIN
     Indication: NEURALGIA
     Dosage: 75 MG, DAILY
     Dates: start: 20140903

REACTIONS (4)
  - Off label use [Unknown]
  - Balance disorder [Unknown]
  - Feeling abnormal [Unknown]
  - Drug effect incomplete [Unknown]

NARRATIVE: CASE EVENT DATE: 201409
